FAERS Safety Report 11793736 (Version 3)
Quarter: 2016Q1

REPORT INFORMATION
  Report Type: Spontaneous
  Country: US (occurrence: US)
  Receive Date: 20151202
  Receipt Date: 20160217
  Transmission Date: 20160525
  Serious: Yes (Disabling)
  Sender: FDA-Public Use
  Company Number: US-PFIZER INC-2015401118

PATIENT
  Age: 56 Year
  Sex: Female
  Weight: 63 kg

DRUGS (9)
  1. TIZANIDINE HCL [Suspect]
     Active Substance: TIZANIDINE HYDROCHLORIDE
     Indication: MUSCLE SPASMS
     Dosage: 2 MG, 2X/DAY
     Dates: start: 201305
  2. TRAZODONE [Suspect]
     Active Substance: TRAZODONE HYDROCHLORIDE
     Indication: SLEEP DISORDER
     Dosage: 50 MG, UNK
     Dates: start: 201305
  3. LYRICA [Suspect]
     Active Substance: PREGABALIN
     Indication: FIBROMYALGIA
     Dosage: 50 MG, 2X/DAY
     Dates: start: 201305
  4. DIVALPROEX SODIUM. [Suspect]
     Active Substance: DIVALPROEX SODIUM
     Dosage: 250 MG, 2X/DAY
     Dates: start: 201305
  5. DULOXETINE HCL [Suspect]
     Active Substance: DULOXETINE HYDROCHLORIDE
     Indication: DEPRESSION
     Dosage: 40 MG, 1X/DAY
     Dates: start: 201305
  6. DULOXETINE HCL [Suspect]
     Active Substance: DULOXETINE HYDROCHLORIDE
     Indication: FIBROMYALGIA
  7. RISPERIDONE. [Concomitant]
     Active Substance: RISPERIDONE
     Dosage: 1 MG, 1X/DAY
     Dates: start: 201305
  8. LYRICA [Suspect]
     Active Substance: PREGABALIN
     Indication: DIABETIC NEUROPATHY
     Dosage: 50 MG, 2X/DAY
     Route: 048
     Dates: start: 201301
  9. ESTRADIOL. [Concomitant]
     Active Substance: ESTRADIOL
     Dosage: 1 MG, DAILY
     Dates: start: 200002

REACTIONS (1)
  - Mental impairment [Unknown]

NARRATIVE: CASE EVENT DATE: 201306
